FAERS Safety Report 5712893-6 (Version None)
Quarter: 2008Q2

REPORT INFORMATION
  Report Type: 
  Country: None (occurrence: None)
  Receive Date: 20080422
  Receipt Date: 20080418
  Transmission Date: 20081010
  Serious: Yes (Other)
  Sender: FDA-Public Use
  Company Number: D0056583A

PATIENT
  Age: 40 Year
  Sex: Female
  Weight: 50 kg

DRUGS (2)
  1. PAROXETINE HCL [Suspect]
     Indication: PANIC DISORDER
     Dosage: 20MG PER DAY
     Route: 048
     Dates: start: 20071217, end: 20080318
  2. CONCOR COR [Concomitant]
     Dosage: 1.25MG UNKNOWN
     Route: 048
     Dates: end: 20080318

REACTIONS (5)
  - FATIGUE [None]
  - SLEEP ATTACKS [None]
  - SOMNAMBULISM [None]
  - SOMNOLENCE [None]
  - SUDDEN ONSET OF SLEEP [None]
